FAERS Safety Report 7237144 (Version 5)
Quarter: 2013Q4

REPORT INFORMATION
  Report Type: Spontaneous
  Country: US (occurrence: US)
  Receive Date: 20100105
  Receipt Date: 20131202
  Transmission Date: 20140711
  Serious: Yes (Hospitalization, Other)
  Sender: FDA-Public Use
  Company Number: US-BAYER-201010031NA

PATIENT
  Age: 23 Year
  Sex: Female
  Weight: 90.7 kg

DRUGS (8)
  1. YAZ [Suspect]
     Route: 048
     Dates: start: 200705, end: 200912
  2. YAZ [Suspect]
     Dosage: UNK
     Dates: start: 20071028, end: 20090730
  3. YAZ [Suspect]
     Dosage: UNK
     Dates: start: 20090831, end: 20110120
  4. YASMIN [Suspect]
  5. ALEVE [NAPROXEN SODIUM] [Concomitant]
  6. PRENATAL VITAMINS [Concomitant]
     Dosage: UNK
     Dates: start: 20070827
  7. IBUPROFEN [IBUPROFEN] [Concomitant]
     Dosage: UNK
     Dates: start: 20070827
  8. PEPCID [Concomitant]
     Dosage: UNK
     Dates: start: 20070827

REACTIONS (4)
  - Cholecystectomy [Unknown]
  - Hydrocholecystis [None]
  - Cholelithiasis [None]
  - Injury [Unknown]
